FAERS Safety Report 9384449 (Version 2)
Quarter: 2013Q3

REPORT INFORMATION
  Report Type: Report from Study
  Country: CA (occurrence: CA)
  Receive Date: 20130705
  Receipt Date: 20130705
  Transmission Date: 20140515
  Serious: Yes (Death, Other)
  Sender: FDA-Public Use
  Company Number: PHHY2008CA01503

PATIENT
  Age: 43 Year
  Sex: Male

DRUGS (1)
  1. CLOZARIL [Suspect]
     Indication: SCHIZOPHRENIA
     Dosage: 400 MG, 100 MG BID + 300 MG HS
     Route: 048
     Dates: start: 20010606

REACTIONS (4)
  - Death [Fatal]
  - Lymphoma [Not Recovered/Not Resolved]
  - White blood cell count decreased [Unknown]
  - Neutrophil count decreased [Unknown]
